FAERS Safety Report 5814958-7 (Version None)
Quarter: 2008Q3

REPORT INFORMATION
  Report Type: 
  Country: None (occurrence: None)
  Receive Date: 20080718
  Receipt Date: 20080714
  Transmission Date: 20090109
  Serious: Yes (Death, Hospitalization)
  Sender: FDA-Public Use
  Company Number: PHHY2008GB09854

PATIENT

DRUGS (3)
  1. CLOZARIL [Suspect]
     Dosage: 350 MG, UNK
     Route: 064
     Dates: start: 20060101
  2. CLOZARIL [Suspect]
     Dosage: 225 MG, UNK
     Route: 064
     Dates: start: 20080526
  3. HYOSCINE HBR HYT [Concomitant]
     Dosage: 600 UG, UNK
     Route: 064

REACTIONS (3)
  - FOETAL HEART RATE ABNORMAL [None]
  - INTRA-UTERINE DEATH [None]
  - PLACENTAL DISORDER [None]
